FAERS Safety Report 6899993-2 (Version None)
Quarter: 2010Q3

REPORT INFORMATION
  Report Type: 
  Country: None (occurrence: None)
  Receive Date: 20100708
  Receipt Date: 20090904
  Transmission Date: 20110219
  Serious: Yes (Other)
  Sender: FDA-Public Use
  Company Number: 2009266679

PATIENT
  Age: 33 Year
  Sex: Female

DRUGS (5)
  1. CHANTIX [Suspect]
     Indication: SMOKING CESSATION THERAPY
     Dates: start: 20090703, end: 20090801
  2. PROMETHAZINE HYDROCHLORIDE WITH CODEINE) CODEINE PHASPHATE, PROMETHAZI [Concomitant]
  3. VICODIN (HYDROCHODONE BITARTRATE,PARACETAMOL) [Concomitant]
  4. SOMA [Concomitant]
  5. XANAX [Concomitant]

REACTIONS (3)
  - DEPRESSED MOOD [None]
  - NAUSEA [None]
  - SUICIDAL BEHAVIOUR [None]
